FAERS Safety Report 10050917 (Version 1)
Quarter: 2014Q2

REPORT INFORMATION
  Report Type: Spontaneous
  Country: US (occurrence: US)
  Receive Date: 20140401
  Receipt Date: 20140401
  Transmission Date: 20141212
  Serious: Yes (Hospitalization)
  Sender: FDA-Public Use
  Company Number: US-GLAXOSMITHKLINE-A1066501A

PATIENT
  Age: 62 Year
  Sex: Male

DRUGS (6)
  1. ADVAIR [Suspect]
     Indication: CHRONIC OBSTRUCTIVE PULMONARY DISEASE
     Dosage: 1PUFF TWICE PER DAY
     Route: 055
     Dates: start: 2006
  2. SIMVASTATIN [Concomitant]
  3. CARVEDILOL [Concomitant]
  4. IRBESARTAN [Concomitant]
  5. CLOPIDOGREL [Concomitant]
  6. SPIRIVA [Concomitant]

REACTIONS (3)
  - Myocardial infarction [Unknown]
  - Blood pressure inadequately controlled [Not Recovered/Not Resolved]
  - Gastrooesophageal reflux disease [Unknown]
